FAERS Safety Report 25875174 (Version 1)
Quarter: 2025Q4

REPORT INFORMATION
  Report Type: Spontaneous
  Country: EU (occurrence: EU)
  Receive Date: 20251003
  Receipt Date: 20251003
  Transmission Date: 20260117
  Serious: Yes (Hospitalization)
  Sender: JOHNSON AND JOHNSON
  Company Number: None

PATIENT
  Age: 80 Year
  Sex: Male
  Weight: 60 kg

DRUGS (3)
  1. STELARA [Suspect]
     Active Substance: USTEKINUMAB
     Indication: Gastrointestinal inflammation
     Route: 058
     Dates: start: 20230518, end: 20230518
  2. STELARA [Suspect]
     Active Substance: USTEKINUMAB
  3. FENOFIBRATE SANDOZ 160 mg, comprim? [Concomitant]
     Indication: Product used for unknown indication
     Route: 048

REACTIONS (3)
  - Hot flush [Recovered/Resolved]
  - Vomiting [Recovered/Resolved]
  - Hyperhidrosis [Recovered/Resolved]

NARRATIVE: CASE EVENT DATE: 20230522
